FAERS Safety Report 20635787 (Version 1)
Quarter: 2022Q1

REPORT INFORMATION
  Report Type: Report from Study
  Country: US (occurrence: None)
  Receive Date: 20220325
  Receipt Date: 20220325
  Transmission Date: 20220423
  Serious: No
  Sender: FDA-Public Use
  Company Number: US-Spark Therapeutics, Inc.-US-SPK-21-00042

PATIENT
  Age: 16 Year
  Sex: Male

DRUGS (6)
  1. LUXTURNA [Suspect]
     Active Substance: VORETIGENE NEPARVOVEC-RZYL
     Indication: RPE65 gene mutation
     Dates: start: 20190625, end: 20190625
  2. LUXTURNA [Suspect]
     Active Substance: VORETIGENE NEPARVOVEC-RZYL
     Indication: Retinal dystrophy
     Dates: start: 20190701, end: 20190701
  3. LUXTURNA [Suspect]
     Active Substance: VORETIGENE NEPARVOVEC-RZYL
     Indication: RPE65 gene mutation
     Dates: start: 20190625, end: 20190625
  4. LUXTURNA [Suspect]
     Active Substance: VORETIGENE NEPARVOVEC-RZYL
     Indication: Retinal dystrophy
     Dates: start: 20190701, end: 20190701
  5. PREDNISONE [Concomitant]
     Active Substance: PREDNISONE
     Indication: Eye inflammation
     Route: 048
     Dates: start: 20190626, end: 20190706
  6. PREDNISONE [Concomitant]
     Active Substance: PREDNISONE
     Indication: Eye inflammation
     Route: 048
     Dates: start: 20190707, end: 20190709

REACTIONS (12)
  - Conjunctival haemorrhage [Recovered/Resolved]
  - Vitreal cells [Recovered/Resolved]
  - Vitreal cells [Recovered/Resolved]
  - Conjunctival haemorrhage [Recovered/Resolved]
  - Retinal degeneration [Recovered/Resolved with Sequelae]
  - Eye inflammation [Recovered/Resolved]
  - Eye oedema [Recovered/Resolved]
  - Eye inflammation [Recovered/Resolved]
  - Lenticular opacities [Recovered/Resolved]
  - Conjunctival hyperaemia [Recovered/Resolved]
  - Conjunctival hyperaemia [Recovered/Resolved]
  - Lenticular opacities [Recovered/Resolved]

NARRATIVE: CASE EVENT DATE: 20190626
